FAERS Safety Report 10068744 (Version 1)
Quarter: 2014Q2

REPORT INFORMATION
  Report Type: Spontaneous
  Country: AR (occurrence: AR)
  Receive Date: 20140409
  Receipt Date: 20140409
  Transmission Date: 20141212
  Serious: Yes (Other)
  Sender: FDA-Public Use
  Company Number: AR-BAYER-2014-049819

PATIENT
  Age: 57 Year
  Sex: Male

DRUGS (4)
  1. NEXAVAR [Suspect]
     Indication: HEPATIC CANCER STAGE IV
     Dosage: UNK
     Route: 048
     Dates: start: 20140218, end: 20140328
  2. NEXAVAR [Suspect]
     Indication: METASTASES TO LUNG
  3. IBUPROFEN [Concomitant]
     Route: 048
  4. TRAMACET [PARACETAMOL,TRAMADOL] [Concomitant]
     Route: 048

REACTIONS (2)
  - Aphagia [Not Recovered/Not Resolved]
  - Asthenia [Not Recovered/Not Resolved]
